FAERS Safety Report 18866764 (Version 1)
Quarter: 2021Q1

REPORT INFORMATION
  Report Type: Spontaneous
  Country: US (occurrence: US)
  Receive Date: 20210208
  Receipt Date: 20210208
  Transmission Date: 20210420
  Serious: Yes (Other)
  Sender: FDA-Public Use
  Company Number: None

PATIENT
  Age: 45 Year
  Sex: Female
  Weight: 74.84 kg

DRUGS (1)
  1. GENERIC PROMETRIUM [Suspect]
     Active Substance: PROGESTERONE

REACTIONS (5)
  - Tendonitis [None]
  - Hot flush [None]
  - Asthenia [None]
  - Dizziness [None]
  - Depressed mood [None]
